FAERS Safety Report 23460289 (Version 1)
Quarter: 2024Q1

REPORT INFORMATION
  Report Type: Spontaneous
  Country: CN (occurrence: CN)
  Receive Date: 20240131
  Receipt Date: 20240131
  Transmission Date: 20240410
  Serious: Yes (Hospitalization, Other)
  Sender: FDA-Public Use
  Company Number: None

PATIENT
  Age: 57 Year
  Sex: Female
  Weight: 54 kg

DRUGS (4)
  1. CYCLOPHOSPHAMIDE [Suspect]
     Active Substance: CYCLOPHOSPHAMIDE
     Indication: Breast cancer female
     Dosage: 0.9 G, ONCE A DAY, DILUTED WITH 0.9% SODIUM CHLORIDE INJECTION 100 ML (THIRD CYCLE)
     Route: 041
     Dates: start: 20231228, end: 20231228
  2. SODIUM CHLORIDE [Suspect]
     Active Substance: SODIUM CHLORIDE
     Indication: Medication dilution
     Dosage: (0.9%) 100 ML, ONCE A DAY, USED TO DILUTE CYCLOPHOSPHAMIDE 0.9 G
     Route: 041
     Dates: start: 20231228, end: 20231228
  3. SODIUM CHLORIDE [Suspect]
     Active Substance: SODIUM CHLORIDE
     Dosage: (0.9%) 250 ML, ONCE A DAY, USED TO DILUTED WITH EPIRUBICIN HYDROCHLORIDE 130 MG
     Route: 041
     Dates: start: 20231228, end: 20231228
  4. EPIRUBICIN HYDROCHLORIDE [Suspect]
     Active Substance: EPIRUBICIN HYDROCHLORIDE
     Indication: Breast cancer female
     Dosage: 130 MG, ONCE A DAY, DILUTED WITH 0.9% SODIUM CHLORIDE INJECTION 250ML (THIRD CYCLE)
     Route: 041
     Dates: start: 20231228, end: 20231228

REACTIONS (2)
  - White blood cell count decreased [Recovered/Resolved]
  - Granulocyte count decreased [Recovered/Resolved]

NARRATIVE: CASE EVENT DATE: 20240110
